FAERS Safety Report 24583136 (Version 1)
Quarter: 2024Q4

REPORT INFORMATION
  Report Type: Spontaneous
  Country: US (occurrence: US)
  Receive Date: 20241106
  Receipt Date: 20241106
  Transmission Date: 20250115
  Serious: Yes (Other)
  Sender: AUROBINDO
  Company Number: US-AUROBINDO-AUR-APL-2024-016029

PATIENT

DRUGS (1)
  1. ESCITALOPRAM OXALATE [Suspect]
     Active Substance: ESCITALOPRAM OXALATE
     Indication: Anxiety
     Dosage: UNK
     Route: 065
     Dates: start: 202308

REACTIONS (6)
  - Erectile dysfunction [Unknown]
  - Mood swings [Unknown]
  - Abdominal pain upper [Unknown]
  - Fatigue [Unknown]
  - Product formulation issue [Unknown]
  - Product substitution issue [Unknown]
